FAERS Safety Report 15997439 (Version 5)
Quarter: 2019Q2

REPORT INFORMATION
  Report Type: Spontaneous
  Country: CN (occurrence: CN)
  Receive Date: 20190222
  Receipt Date: 20190604
  Transmission Date: 20190711
  Serious: Yes (Death, Hospitalization)
  Sender: FDA-Public Use
  Company Number: CN-CELGENEUS-CHN-20190103644

PATIENT
  Age: 75 Year
  Sex: Male
  Weight: 81 kg

DRUGS (24)
  1. CEFOPERAZONE SODIUM AND SULBACTAM SODIUM [Concomitant]
     Active Substance: CEFOPERAZONE SODIUM\SULBACTAM SODIUM
     Indication: PNEUMONIA
     Dosage: 9 GRAM
     Route: 041
     Dates: start: 20190114, end: 20190117
  2. PROPACETAMOL HYDROCHLORIDE [Concomitant]
     Active Substance: PROPACETAMOL HYDROCHLORIDE
     Dosage: 1 GRAM
     Route: 041
     Dates: start: 20190109, end: 20190109
  3. AZACITIDINE. [Suspect]
     Active Substance: AZACITIDINE
     Indication: ACUTE MYELOID LEUKAEMIA
     Dosage: 75 MILLIGRAM/SQ. METER
     Route: 058
     Dates: start: 20181220, end: 20181226
  4. OSELTAMIVIR PHOSPHATE. [Concomitant]
     Active Substance: OSELTAMIVIR PHOSPHATE
     Indication: ANTIVIRAL TREATMENT
     Dosage: 150 MILLIGRAM
     Route: 048
     Dates: start: 20190101, end: 20190106
  5. CEFOPERAZONE SODIUM AND SULBACTAM SODIUM [Concomitant]
     Active Substance: CEFOPERAZONE SODIUM\SULBACTAM SODIUM
     Indication: INFLAMMATION
     Dosage: 9 GRAM
     Route: 041
     Dates: start: 20190101, end: 20190104
  6. DOXOFYLLINE W/GLUCOSE [Concomitant]
     Indication: ASTHMA
     Dosage: 100 MILLIGRAM
     Route: 041
     Dates: start: 20190102, end: 20190109
  7. PROPACETAMOL HYDROCHLORIDE [Concomitant]
     Active Substance: PROPACETAMOL HYDROCHLORIDE
     Indication: PYREXIA
     Dosage: 1 GRAM
     Route: 041
     Dates: start: 20181231, end: 20181231
  8. TIGECYCLINE. [Concomitant]
     Active Substance: TIGECYCLINE
     Indication: INFLAMMATION
     Dosage: 50 MILLIGRAM
     Route: 041
     Dates: start: 20190114, end: 20190117
  9. AMBROXOL HYDROCHLORIDE [Concomitant]
     Active Substance: AMBROXOL HYDROCHLORIDE
     Indication: PRODUCT USED FOR UNKNOWN INDICATION
     Dosage: 90 MILLIGRAM
     Route: 045
     Dates: start: 20190102, end: 20190117
  10. LINEZOLID. [Concomitant]
     Active Substance: LINEZOLID
     Indication: INFLAMMATION
     Dosage: 1200 MILLIGRAM
     Route: 041
     Dates: start: 20190107, end: 20190114
  11. AMLODIPINE BESYLATE. [Concomitant]
     Active Substance: AMLODIPINE BESYLATE
     Indication: HYPERTENSION
     Dosage: 5 MILLIGRAM
     Route: 048
     Dates: start: 201110
  12. PROPACETAMOL HYDROCHLORIDE [Concomitant]
     Active Substance: PROPACETAMOL HYDROCHLORIDE
     Dosage: 2 GRAM
     Route: 041
     Dates: start: 20190101, end: 20190101
  13. SALBUTAMOL SULFATE [Concomitant]
     Active Substance: ALBUTEROL SULFATE
     Indication: PRODUCT USED FOR UNKNOWN INDICATION
     Route: 045
     Dates: start: 20190102, end: 20190117
  14. IMIPENEM AND CILASTATIN SODIUM [Concomitant]
     Active Substance: CILASTATIN SODIUM\IMIPENEM
     Indication: INFLAMMATION
     Dosage: 3 GRAM
     Route: 041
     Dates: start: 20190104, end: 20190105
  15. MOXIFLOXACIN. [Concomitant]
     Active Substance: MOXIFLOXACIN
     Indication: ANTIINFLAMMATORY THERAPY
     Dosage: .4 GRAM
     Route: 041
     Dates: start: 20181231, end: 20190105
  16. PLACEBO [Concomitant]
     Active Substance: UNSPECIFIED INGREDIENT
     Indication: ACUTE MYELOID LEUKAEMIA
     Dosage: UNKNOWN
     Route: 048
     Dates: start: 20181220, end: 20190108
  17. MEROPENEM. [Concomitant]
     Active Substance: MEROPENEM
     Indication: INFLAMMATION
     Dosage: 3 GRAM
     Route: 041
     Dates: start: 20190105, end: 20190114
  18. MOXIFLOXACIN. [Concomitant]
     Active Substance: MOXIFLOXACIN
     Dosage: .4 GRAM
     Route: 041
     Dates: start: 20181225, end: 20181230
  19. PROPACETAMOL HYDROCHLORIDE [Concomitant]
     Active Substance: PROPACETAMOL HYDROCHLORIDE
     Dosage: 1 GRAM
     Route: 041
     Dates: start: 20190103, end: 20190103
  20. ACETYLCYSTEINE. [Concomitant]
     Active Substance: ACETYLCYSTEINE
     Indication: PRODUCT USED FOR UNKNOWN INDICATION
     Dosage: 1800 MILLIGRAM
     Route: 048
     Dates: start: 20190105, end: 20190117
  21. MICAFUNGIN SODIUM [Concomitant]
     Active Substance: MICAFUNGIN SODIUM
     Indication: ANTIFUNGAL TREATMENT
     Dosage: 150 MILLIGRAM
     Route: 041
     Dates: start: 20190101, end: 20190107
  22. CASPOFUNGIN ACETATE. [Concomitant]
     Active Substance: CASPOFUNGIN ACETATE
     Indication: PNEUMONIA
     Dosage: 50 MILLIGRAM
     Route: 041
     Dates: start: 20181207, end: 20181220
  23. CASPOFUNGIN ACETATE. [Concomitant]
     Active Substance: CASPOFUNGIN ACETATE
     Indication: ANTI-INFECTIVE THERAPY
     Dosage: 50 MILLIGRAM
     Route: 041
     Dates: start: 20190108, end: 20190117
  24. NORVANCOMYCIN HYDROCHLORIDE [Concomitant]
     Active Substance: NORVANCOMYCIN HYDROCHLORIDE
     Indication: INFLAMMATION
     Dosage: 2 GRAM
     Route: 041
     Dates: start: 20190105, end: 20190107

REACTIONS (2)
  - Pneumonia [Recovered/Resolved]
  - Death [Fatal]

NARRATIVE: CASE EVENT DATE: 20181230
